FAERS Safety Report 22303047 (Version 4)
Quarter: 2024Q1

REPORT INFORMATION
  Report Type: Spontaneous
  Country: US (occurrence: US)
  Receive Date: 20230510
  Receipt Date: 20240327
  Transmission Date: 20240409
  Serious: Yes (Other)
  Sender: FDA-Public Use
  Company Number: US-SA-SAC20230509001145

PATIENT
  Age: 21 Year
  Sex: Male

DRUGS (8)
  1. ELOCTATE [Suspect]
     Active Substance: EFMOROCTOCOG ALFA
     Indication: Factor VIII deficiency
     Dosage: 4000 U, QW (INFUSE 4000 UNITS (3600-4400) SLOW IV ON MONDAY
     Route: 042
     Dates: start: 202302
  2. ELOCTATE [Suspect]
     Active Substance: EFMOROCTOCOG ALFA
     Indication: Factor VIII deficiency
     Dosage: 4000 U, QW (INFUSE 4000 UNITS (3600-4400) SLOW IV ON MONDAY
     Route: 042
     Dates: start: 202302
  3. ELOCTATE [Suspect]
     Active Substance: EFMOROCTOCOG ALFA
     Dosage: 4000 U, PRN (INFUSE 4000 UNITS (3600-4400) SLOW IV AS NEEDED FOR MINOR BLEEDS)
     Route: 042
     Dates: start: 202302
  4. ELOCTATE [Suspect]
     Active Substance: EFMOROCTOCOG ALFA
     Dosage: 4000 U, PRN (INFUSE 4000 UNITS (3600-4400) SLOW IV AS NEEDED FOR MINOR BLEEDS)
     Route: 042
     Dates: start: 202302
  5. ELOCTATE [Suspect]
     Active Substance: EFMOROCTOCOG ALFA
     Dosage: 7000 U, QW (INFUSE 7000 UNITS (6300-7700) SLOW IV ON THURSDAY)
     Route: 042
     Dates: start: 202302
  6. ELOCTATE [Suspect]
     Active Substance: EFMOROCTOCOG ALFA
     Dosage: 7000 U, QW (INFUSE 7000 UNITS (6300-7700) SLOW IV ON THURSDAY)
     Route: 042
     Dates: start: 202302
  7. ELOCTATE [Suspect]
     Active Substance: EFMOROCTOCOG ALFA
     Dosage: 7000 U, PRN (INFUSE 7000 UNITS (6300-7700) SLOW IV AS NEEDED FOR MAJOR BLEEDS)
     Route: 042
     Dates: start: 202302
  8. ELOCTATE [Suspect]
     Active Substance: EFMOROCTOCOG ALFA
     Dosage: 7000 U, PRN (INFUSE 7000 UNITS (6300-7700) SLOW IV AS NEEDED FOR MAJOR BLEEDS)
     Route: 042
     Dates: start: 202302

REACTIONS (6)
  - Spontaneous haemorrhage [Not Recovered/Not Resolved]
  - Traumatic haemorrhage [Not Recovered/Not Resolved]
  - Limb injury [Not Recovered/Not Resolved]
  - Haemorrhage [Not Recovered/Not Resolved]
  - Traumatic haemorrhage [Unknown]
  - Limb injury [Unknown]

NARRATIVE: CASE EVENT DATE: 20230421
